FAERS Safety Report 8935351 (Version 1)
Quarter: 2012Q4

REPORT INFORMATION
  Report Type: Spontaneous
  Country: US (occurrence: None)
  Receive Date: 20121127
  Receipt Date: 20121127
  Transmission Date: 20130627
  Serious: No
  Sender: FDA-Public Use
  Company Number: None

PATIENT
  Age: 72 Year
  Sex: Female

DRUGS (1)
  1. ALPRAZOLAM, 1 MG, PUREPAC/ACTAVIS [Suspect]
     Route: 048
     Dates: start: 20121101, end: 20121121

REACTIONS (4)
  - Drug ineffective [None]
  - Product quality issue [None]
  - Irritability [None]
  - Blood pressure increased [None]
